FAERS Safety Report 13565803 (Version 1)
Quarter: 2017Q2

REPORT INFORMATION
  Report Type: Spontaneous
  Country: US (occurrence: US)
  Receive Date: 20170520
  Receipt Date: 20170520
  Transmission Date: 20170830
  Serious: No
  Sender: FDA-Public Use
  Company Number: US-DRREDDYS-DRL/USA/16/0079386

PATIENT
  Sex: Female

DRUGS (1)
  1. ZENATANE [Suspect]
     Active Substance: ISOTRETINOIN
     Indication: KERATOSIS FOLLICULAR
     Route: 065
     Dates: start: 20151215, end: 20160419

REACTIONS (1)
  - Product use in unapproved indication [Unknown]
